FAERS Safety Report 5282700-7 (Version None)
Quarter: 2007Q1

REPORT INFORMATION
  Report Type: 
  Country: None (occurrence: None)
  Receive Date: 20061226
  Receipt Date: 20060905
  Transmission Date: 20070707
  Serious: No
  Sender: FDA-Public Use
  Company Number: PHEH2006US11330

PATIENT
  Age: 85 Year
  Sex: Male

DRUGS (2)
  1. ENABLEX [Suspect]
     Indication: URINARY INCONTINENCE
     Dosage: SEE IMAGE
     Dates: start: 20060801
  2. ENABLEX [Suspect]
     Indication: URINARY INCONTINENCE
     Dosage: SEE IMAGE
     Dates: start: 20060830

REACTIONS (3)
  - BLOOD URINE PRESENT [None]
  - CYSTOSCOPY [None]
  - URINARY TRACT INFECTION [None]
